FAERS Safety Report 7450132-9 (Version None)
Quarter: 2011Q2

REPORT INFORMATION
  Report Type: 
  Country: None (occurrence: None)
  Receive Date: 20110421
  Receipt Date: 20110411
  Transmission Date: 20111010
  Serious: Yes (Other)
  Sender: FDA-Public Use
  Company Number: 1000020143

PATIENT
  Age: 76 Year
  Sex: Female

DRUGS (2)
  1. ESCITALOPRAM [Suspect]
     Indication: ANXIETY
     Dosage: 20 MG (20 MG, 1 IN 1 D), ORAL
     Route: 048
     Dates: start: 20090101, end: 20110406
  2. QUETIAPINE (QUETIAPINE) (QUETIAPINE) [Concomitant]

REACTIONS (4)
  - SYNCOPE [None]
  - BURNING SENSATION [None]
  - FEELING ABNORMAL [None]
  - PNEUMONIA [None]
